FAERS Safety Report 8987611 (Version 1)
Quarter: 2012Q4

REPORT INFORMATION
  Report Type: 
  Country: US (occurrence: US)
  Receive Date: 20121227
  Receipt Date: 20121227
  Transmission Date: 20130627
  Serious: No
  Sender: FDA-Public Use
  Company Number: US-ASTRAZENECA-2012SE40563

PATIENT
  Age: 60 Year
  Sex: Male
  Weight: 86.2 kg

DRUGS (3)
  1. PULMICORT RESPULES [Suspect]
     Indication: SINUS DISORDER
     Route: 055
  2. NEXIUM [Concomitant]
  3. PREDNISONE [Concomitant]

REACTIONS (4)
  - Gastrooesophageal reflux disease [Unknown]
  - Off label use [Unknown]
  - Off label use [Unknown]
  - Off label use [Unknown]
